FAERS Safety Report 8455985 (Version 3)
Quarter: 2013Q3

REPORT INFORMATION
  Report Type: Spontaneous
  Country: DE (occurrence: None)
  Receive Date: 20120305
  Receipt Date: 20130926
  Transmission Date: 20140515
  Serious: Yes (Hospitalization, Other)
  Sender: FDA-Public Use
  Company Number: DE-JNJFOC-20120210509

PATIENT
  Age: 83 Year
  Sex: Male
  Weight: 67.5 kg

DRUGS (10)
  1. DECITABINE [Suspect]
     Indication: ACUTE MYELOID LEUKAEMIA
     Dosage: 37 MG, IN 1 DAY, INTRAVENOUS
     Route: 042
     Dates: start: 20120127, end: 20120130
  2. ASS (ACETYLSALICYLIC ACID) [Concomitant]
  3. CONCOR (BISOPROLOL FUMARATE) [Concomitant]
  4. TOREM (TORASEMIDE) [Concomitant]
  5. RAMIPRIL (RAMIPRIL) [Concomitant]
  6. SIMVASTATIN (SIMVASTATIN) [Concomitant]
  7. CIPRAMIL (CITALOPRAM) [Concomitant]
  8. BIFITERAL (LACTULOSE) [Concomitant]
  9. CLEXANE (ENOXAPARIN SODIUM) [Concomitant]
  10. PROTON PUMP INHIBITOR (PROTON PUMP INHIBITORS) [Concomitant]

REACTIONS (7)
  - Blood bilirubin increased [None]
  - Leukopenia [None]
  - General physical health deterioration [None]
  - Anaemia [None]
  - Infection [None]
  - Pleural effusion [None]
  - Sepsis [None]
